FAERS Safety Report 5357691-0 (Version None)
Quarter: 2007Q2

REPORT INFORMATION
  Report Type: 
  Country: None (occurrence: None)
  Receive Date: 20070614
  Receipt Date: 20070611
  Transmission Date: 20071010
  Serious: Yes (Hospitalization)
  Sender: FDA-Public Use
  Company Number: FR-SANOFI-SYNTHELABO-A02200701685

PATIENT
  Age: 70 Year
  Sex: Male

DRUGS (3)
  1. TILDIEM [Concomitant]
     Indication: DRUG USE FOR UNKNOWN INDICATION
     Route: 048
  2. CARDENSIEL [Concomitant]
     Indication: DRUG USE FOR UNKNOWN INDICATION
     Route: 048
  3. PLAVIX [Suspect]
     Indication: ARTERIOSCLEROSIS CORONARY ARTERY
     Dosage: UNK
     Route: 048

REACTIONS (3)
  - ANAEMIA [None]
  - MELAENA [None]
  - RECTAL HAEMORRHAGE [None]
